FAERS Safety Report 9088300 (Version 1)
Quarter: 2013Q1

REPORT INFORMATION
  Report Type: Spontaneous
  Country: US (occurrence: US)
  Receive Date: 20130218
  Receipt Date: 20130218
  Transmission Date: 20140127
  Serious: No
  Sender: FDA-Public Use
  Company Number: US-ABBOTT-12P-163-0994037-00

PATIENT
  Sex: Female
  Weight: 62.65 kg

DRUGS (2)
  1. SIMCOR 500/20 [Suspect]
     Dosage: 500/20 MILLIGRAMS
     Dates: start: 2012, end: 2012
  2. TOPROL [Concomitant]
     Indication: TACHYCARDIA

REACTIONS (1)
  - Arthralgia [Recovered/Resolved]
